FAERS Safety Report 11513781 (Version 11)
Quarter: 2020Q3

REPORT INFORMATION
  Report Type: Spontaneous
  Country: US (occurrence: US)
  Receive Date: 20150916
  Receipt Date: 20200715
  Transmission Date: 20201102
  Serious: Yes (Other)
  Sender: FDA-Public Use
  Company Number: US-PFIZER INC-2015295461

PATIENT
  Age: 58 Year
  Sex: Female
  Weight: 89 kg

DRUGS (17)
  1. FOLIC ACID. [Concomitant]
     Active Substance: FOLIC ACID
     Dosage: 1 MG, DAILY
     Route: 048
  2. DIPHENHYDRAMINE. [Concomitant]
     Active Substance: DIPHENHYDRAMINE
     Dosage: 12.5 MG (12.5 MG/5 ML ELIX 60 MG)
  3. NYSTATIN. [Concomitant]
     Active Substance: NYSTATIN
     Dosage: UNK (100,000 UNIT/ML SUSP 500,000 UNITS)
  4. SUTENT [Suspect]
     Active Substance: SUNITINIB MALATE
     Dosage: 50 MG, CYCLIC (2 WEEKS ON 1 WEEK OFF CYCLE EVERY 21 DAYS)
     Route: 048
  5. CELEXA [Concomitant]
     Active Substance: CITALOPRAM HYDROBROMIDE
     Dosage: 20 MG, DAILY
     Route: 048
  6. BREO ELLIPTA [Concomitant]
     Active Substance: FLUTICASONE FUROATE\VILANTEROL TRIFENATATE
     Dosage: 1 DF, DAILY (FLUTICASONE FUROATE 200 MCG AND VILANTEROL 25 MCG)
     Route: 045
  7. VENTOLIN HFA [Concomitant]
     Active Substance: ALBUTEROL SULFATE
     Indication: WHEEZING
     Dosage: UNK, AS NEEDED (90 MCG/ACTUATION/1?2 PUFFS AS DIRECTED EVERY 6 HOURS)
     Route: 045
  8. SYNTHROID [Concomitant]
     Active Substance: LEVOTHYROXINE SODIUM
     Dosage: 125 UG (EARLY MORNING 3 HOURS BEFORE EATING AND 3 HOURS AFTER OR BEFORE TAKING ANY OTHER MEDS.)
     Route: 048
  9. OMEPRAZOLE. [Concomitant]
     Active Substance: OMEPRAZOLE
     Dosage: 20 MG
     Route: 048
  10. SUTENT [Suspect]
     Active Substance: SUNITINIB MALATE
     Indication: GASTROINTESTINAL STROMAL TUMOUR
     Dosage: 50 MG, CYCLIC (28 DAYS ON/14 DAYS OFF)
     Route: 048
     Dates: start: 20150801
  11. PROVENTIL HFA [Concomitant]
     Active Substance: ALBUTEROL SULFATE
     Indication: WHEEZING
     Dosage: UNK, AS NEEDED(90 MCG/ACTUATION/1?2 PUFFS AS DIRECTED EVERY 6 HOURS)/
     Route: 045
  12. LEVOXYL [Suspect]
     Active Substance: LEVOTHYROXINE SODIUM
     Dosage: 125 UG, DAILY(EARLY MORNING 3 HOURS BEFORE EATING AND 3 HOURS AFTER OR BEFORE TAKING ANY OTHER MEDS)
     Route: 048
  13. MAGNESIUM HYDROXIDE. [Concomitant]
     Active Substance: MAGNESIUM HYDROXIDE
     Dosage: UNK, 400 MG/5 ML SUSP 400 MG
  14. ZOFRAN?ODT [Concomitant]
     Indication: NAUSEA
     Dosage: 8 MG, AS NEEDED (EVERY 12 (TWELVE) HOURS )
     Route: 048
  15. SUTENT [Suspect]
     Active Substance: SUNITINIB MALATE
     Dosage: 37.5 MG, CYCLIC (DAILY FOR 14 DAYS FOLLOWED BY 7 DAYS OFF/37.5MG FOR 2 WEEKS THEN OFF FOR A WEEK)
     Route: 048
  16. PROAIR HFA [Concomitant]
     Active Substance: ALBUTEROL SULFATE
     Indication: WHEEZING
     Dosage: UNK, AS NEEDED (90 MCG/ACTUATION/1?2 PUFFS AS DIRECTED EVERY 6 HOURS
     Route: 045
  17. POTASSIUM CHLORIDE. [Concomitant]
     Active Substance: POTASSIUM CHLORIDE
     Dosage: 20 MG, AS NEEDED (APPLY ROUTE AS NEEDED)

REACTIONS (25)
  - Fatigue [Unknown]
  - Skin exfoliation [Unknown]
  - Stomatitis [Unknown]
  - Pain [Unknown]
  - Lip dry [Unknown]
  - Neutropenia [Unknown]
  - Mucosal inflammation [Unknown]
  - Skin abrasion [Unknown]
  - Weight decreased [Unknown]
  - Hypogeusia [Unknown]
  - Dyspnoea [Unknown]
  - Leukopenia [Unknown]
  - Asthenia [Unknown]
  - Rash [Unknown]
  - Perineal pain [Unknown]
  - Gingival bleeding [Unknown]
  - Jaundice [Unknown]
  - Nausea [Unknown]
  - Lip blister [Unknown]
  - Feeding disorder [Unknown]
  - Palmar-plantar erythrodysaesthesia syndrome [Unknown]
  - Blister [Unknown]
  - Thrombocytopenia [Unknown]
  - Dyspepsia [Unknown]
  - Hyperaesthesia [Unknown]

NARRATIVE: CASE EVENT DATE: 201607
